FAERS Safety Report 7653569-8 (Version None)
Quarter: 2011Q3

REPORT INFORMATION
  Report Type: 
  Country: None (occurrence: None)
  Receive Date: 20110803
  Receipt Date: 20110728
  Transmission Date: 20111222
  Serious: Yes (Life-Threatening, Hospitalization, Other)
  Sender: FDA-Public Use
  Company Number: PHHY2011GB68607

PATIENT

DRUGS (5)
  1. RAMIPRIL [Suspect]
     Indication: CARDIAC FAILURE CONGESTIVE
     Dosage: 10 MG, DAILY
     Route: 048
  2. TRIMETHOPRIM [Interacting]
     Indication: URINARY TRACT INFECTION
     Dosage: 200 MG, BID
     Route: 048
     Dates: start: 20101229
  3. BENDROFLUMETHIAZIDE [Interacting]
     Indication: CARDIAC FAILURE CONGESTIVE
     Dosage: 2.5 MG, DAILY
     Route: 048
  4. CARVEDIOL [Concomitant]
     Dosage: 3.75 MG, UNK
  5. WARFARIN [Concomitant]
     Indication: ATRIAL FIBRILLATION

REACTIONS (3)
  - CONFUSIONAL STATE [None]
  - DRUG INTERACTION [None]
  - HYPONATRAEMIA [None]
